FAERS Safety Report 16775893 (Version 4)
Quarter: 2019Q4

REPORT INFORMATION
  Report Type: Spontaneous
  Country: SE (occurrence: SE)
  Receive Date: 20190905
  Receipt Date: 20191107
  Transmission Date: 20200122
  Serious: Yes (Other)
  Sender: FDA-Public Use
  Company Number: SE-IPSEN BIOPHARMACEUTICALS, INC.-2019-14128

PATIENT
  Age: 60 Year
  Sex: Female

DRUGS (6)
  1. CITALOPRAM [Concomitant]
     Active Substance: CITALOPRAM HYDROBROMIDE
  2. DYSPORT [Suspect]
     Active Substance: ABOBOTULINUMTOXINA
     Indication: OFF LABEL USE
  3. PREGABALIN. [Concomitant]
     Active Substance: PREGABALIN
  4. DYSPORT [Suspect]
     Active Substance: ABOBOTULINUMTOXINA
     Indication: MUSCLE SPASTICITY
     Dosage: 500 IU (300 UNITS IN RIGHT ADDUCTOR, LONGUS, MAGNUS, BREVIS AND 200 UNITS IN LEFT ADDUCTOR LONGUS AN
     Route: 030
     Dates: start: 20190513, end: 20190513
  5. HIPREX [Concomitant]
     Active Substance: METHENAMINE HIPPURATE
  6. BACLOFEN. [Concomitant]
     Active Substance: BACLOFEN

REACTIONS (7)
  - Muscle swelling [Recovering/Resolving]
  - Muscle necrosis [Unknown]
  - Muscle oedema [Unknown]
  - Muscle spasms [Unknown]
  - Myositis [Unknown]
  - C-reactive protein increased [Unknown]
  - Off label use [Unknown]

NARRATIVE: CASE EVENT DATE: 2019
